FAERS Safety Report 4635892-4 (Version None)
Quarter: 2005Q2

REPORT INFORMATION
  Report Type: 
  Country: None (occurrence: None)
  Receive Date: 20050415
  Receipt Date: 20050408
  Transmission Date: 20051028
  Serious: Yes (Other)
  Sender: FDA-Public Use
  Company Number: CA-GLAXOSMITHKLINE-A0553873A

PATIENT
  Sex: Female

DRUGS (6)
  1. AVANDIA [Suspect]
     Indication: DRUG USE FOR UNKNOWN INDICATION
  2. ACTOS [Suspect]
     Indication: DRUG USE FOR UNKNOWN INDICATION
  3. FUROSEMIDE [Concomitant]
     Route: 048
  4. GLYBURIDE [Concomitant]
  5. METFORMIN HCL [Concomitant]
  6. SPIRONOLACTONE [Concomitant]
     Route: 048

REACTIONS (11)
  - ABDOMINAL DISTENSION [None]
  - ABDOMINAL PAIN [None]
  - BLOOD AMYLASE INCREASED [None]
  - CHOLELITHIASIS [None]
  - CONSTIPATION [None]
  - DIZZINESS [None]
  - HEPATIC ENZYME INCREASED [None]
  - LIPASE INCREASED [None]
  - PALPITATIONS [None]
  - PANCREATITIS [None]
  - PROTHROMBIN LEVEL DECREASED [None]
